FAERS Safety Report 8784824 (Version 1)
Quarter: 2012Q4

REPORT INFORMATION
  Report Type: Spontaneous
  Country: US (occurrence: None)
  Receive Date: 20120907
  Receipt Date: 20120907
  Transmission Date: 20130627
  Serious: Yes (Other)
  Sender: FDA-Public Use
  Company Number: None

PATIENT
  Age: 54 Year
  Sex: Female
  Weight: 53.52 kg

DRUGS (1)
  1. TERBINAFINE HYDOCHLORIDE [Suspect]
     Indication: FUNGAL INFECTION OF NAIL
     Dates: start: 20120801, end: 20120831

REACTIONS (4)
  - Dysgeusia [None]
  - Ageusia [None]
  - Tongue ulceration [None]
  - Weight decreased [None]
